FAERS Safety Report 18063972 (Version 2)
Quarter: 2020Q3

REPORT INFORMATION
  Report Type: Spontaneous
  Country: FI (occurrence: FI)
  Receive Date: 20200724
  Receipt Date: 20200813
  Transmission Date: 20201103
  Serious: Yes (Hospitalization)
  Sender: FDA-Public Use
  Company Number: FI-TEVA-2020-FI-1803461

PATIENT
  Age: 85 Year
  Sex: Female

DRUGS (1)
  1. GABAPENTIN RATIOPHARM [Suspect]
     Active Substance: GABAPENTIN
     Dosage: 1?2 CAPS PER DAY AND ADDITIONALLY 1?2 CAPS AT THE EVENING IF NECESSARY
     Route: 048

REACTIONS (4)
  - Multiple injuries [Recovering/Resolving]
  - Dizziness [Recovering/Resolving]
  - Fall [Recovering/Resolving]
  - Arthralgia [Not Recovered/Not Resolved]

NARRATIVE: CASE EVENT DATE: 20200711
